APPROVED DRUG PRODUCT: ACYCLOVIR SODIUM
Active Ingredient: ACYCLOVIR SODIUM
Strength: EQ 500MG BASE/VIAL
Dosage Form/Route: INJECTABLE;INJECTION
Application: A075015 | Product #001
Applicant: FRESENIUS KABI USA LLC
Approved: Apr 30, 1998 | RLD: No | RS: No | Type: DISCN